FAERS Safety Report 12195821 (Version 2)
Quarter: 2016Q2

REPORT INFORMATION
  Report Type: Spontaneous
  Country: BE (occurrence: BE)
  Receive Date: 20160321
  Receipt Date: 20160420
  Transmission Date: 20160815
  Serious: Yes (Death, Other)
  Sender: FDA-Public Use
  Company Number: BE-NOVOPROD-484052

PATIENT
  Age: 80 Year
  Sex: Male

DRUGS (2)
  1. VICTOZA [Suspect]
     Active Substance: LIRAGLUTIDE
     Dosage: 1.8 MG, QD
     Route: 065
     Dates: start: 201601, end: 20160126
  2. VICTOZA [Suspect]
     Active Substance: LIRAGLUTIDE
     Indication: PRODUCT USED FOR UNKNOWN INDICATION
     Dosage: UNK
     Route: 065
     Dates: start: 20150706, end: 201601

REACTIONS (2)
  - Pancreatic carcinoma metastatic [Fatal]
  - General physical health deterioration [Unknown]

NARRATIVE: CASE EVENT DATE: 201601
